FAERS Safety Report 23178656 (Version 1)
Quarter: 2023Q4

REPORT INFORMATION
  Report Type: Report from Study
  Country: CN (occurrence: CN)
  Receive Date: 20231113
  Receipt Date: 20231113
  Transmission Date: 20240110
  Serious: Yes (Other)
  Sender: FDA-Public Use
  Company Number: CN-HUTCHMED LIMITED-HMP2023CN01693

PATIENT
  Age: 46 Year
  Sex: Female

DRUGS (1)
  1. FRUQUINTINIB [Suspect]
     Active Substance: FRUQUINTINIB
     Indication: Rectal cancer
     Dosage: 4 MILLIGRAM
     Route: 065
     Dates: start: 202301

REACTIONS (4)
  - Hypothyroidism [Unknown]
  - Lymphadenopathy [Unknown]
  - Dysphonia [Unknown]
  - Abdominal discomfort [Unknown]
